FAERS Safety Report 19031514 (Version 1)
Quarter: 2021Q1

REPORT INFORMATION
  Report Type: Spontaneous
  Country: US (occurrence: US)
  Receive Date: 20210319
  Receipt Date: 20210319
  Transmission Date: 20210420
  Serious: No
  Sender: FDA-Public Use
  Company Number: None

PATIENT
  Sex: Female

DRUGS (2)
  1. GAMUNEX?C [Suspect]
     Active Substance: HUMAN IMMUNOGLOBULIN G
     Indication: RILEY-DAY SYNDROME
     Dosage: INFUSE 40 GRAMS (400 ML) ALTERNATING WITH 35 GRAMS (350 ML) INTRAVENOUSLY EVERY 2 WEEKS AT ARATE OF 7 GRAMS PER HOUR
     Route: 011
     Dates: start: 20210203
  2. GAMUNEX?C [Suspect]
     Active Substance: HUMAN IMMUNOGLOBULIN G
     Indication: RILEY-DAY SYNDROME
     Dosage: INFUSE 40 GRAMS (400 ML) ALTERNATING WITH 35 GRAMS (350 ML) INTRAVENOUSLY EVERY 2 WEEKS AT ARATE OF 7 GRAMS PER HOUR
     Route: 042
     Dates: start: 20210203

REACTIONS (1)
  - Therapy non-responder [None]
